FAERS Safety Report 8328510-5 (Version None)
Quarter: 2012Q2

REPORT INFORMATION
  Report Type: 
  Country: None (occurrence: None)
  Receive Date: 20120430
  Receipt Date: 20120417
  Transmission Date: 20120825
  Serious: Yes (Hospitalization)
  Sender: FDA-Public Use
  Company Number: 2012CP000004

PATIENT
  Age: 4 Year
  Sex: Male

DRUGS (4)
  1. ACETAMINOPHEN [Suspect]
     Indication: ACUTE LYMPHOCYTIC LEUKAEMIA
     Dosage: IV
     Route: 042
     Dates: start: 20111201
  2. SUFENTANYL [Suspect]
     Indication: ANAESTHESIA
     Dosage: 3UG, IV
     Route: 042
  3. METHOTREXATE SODIUM [Suspect]
     Indication: ACUTE LYMPHOCYTIC LEUKAEMIA
     Dosage: 12 MG; INTH
     Route: 037
     Dates: start: 20111201
  4. PROPOFOL [Suspect]
     Indication: ANAESTHESIA
     Dosage: 100MG, IV
     Route: 042

REACTIONS (1)
  - ATRIOVENTRICULAR BLOCK SECOND DEGREE [None]
